FAERS Safety Report 13849460 (Version 2)
Quarter: 2017Q4

REPORT INFORMATION
  Report Type: Spontaneous
  Country: FR (occurrence: FR)
  Receive Date: 20170809
  Receipt Date: 20171030
  Transmission Date: 20180320
  Serious: Yes (Disabling)
  Sender: FDA-Public Use
  Company Number: PHHY2017FR115320

PATIENT
  Age: 51 Year
  Sex: Female

DRUGS (2)
  1. COSENTYX [Suspect]
     Active Substance: SECUKINUMAB
     Indication: PSORIATIC ARTHROPATHY
     Dosage: 150 MG, UNK
     Route: 058
     Dates: start: 201701, end: 201706
  2. CELEBREX [Suspect]
     Active Substance: CELECOXIB
     Indication: PSORIATIC ARTHROPATHY
     Dosage: UNK
     Route: 048
     Dates: start: 201701

REACTIONS (4)
  - Disease progression [Not Recovered/Not Resolved]
  - Deafness bilateral [Not Recovered/Not Resolved]
  - Rhinorrhoea [Not Recovered/Not Resolved]
  - Ear infection [Not Recovered/Not Resolved]

NARRATIVE: CASE EVENT DATE: 201703
